FAERS Safety Report 5727702-9 (Version None)
Quarter: 2008Q2

REPORT INFORMATION
  Report Type: 
  Country: None (occurrence: None)
  Receive Date: 20080505
  Receipt Date: 20080425
  Transmission Date: 20081010
  Serious: No
  Sender: FDA-Public Use
  Company Number: US-TYCO HEALTHCARE/MALLINCKRODT-T200800700

PATIENT

DRUGS (9)
  1. SODIUM IODIDE I 131 [Suspect]
     Indication: THYROID THERAPY
     Dosage: 100 MCI, SINGLE
     Route: 048
     Dates: start: 20080328, end: 20080328
  2. DILANTIN [Concomitant]
     Indication: EPILEPSY
     Dosage: 200 MG, BID
     Route: 048
  3. HYDROCHLOROTHIAZIDE [Concomitant]
     Dosage: 25 MG, QD
     Route: 048
  4. LIPITOR [Concomitant]
     Dosage: 40 MG, QD
     Route: 048
  5. LISINOPRIL [Concomitant]
     Dosage: 40 MG, QD
     Route: 048
  6. ZETIA [Concomitant]
     Dosage: 10 MG, QD
     Route: 048
  7. METFORMIN HCL [Concomitant]
     Indication: DIABETES MELLITUS
     Dosage: 100 MG, BID
     Route: 048
  8. NOVOLOG [Concomitant]
     Indication: DIABETES MELLITUS
     Dosage: 15 IU, TID
     Route: 058
  9. LANTUS [Concomitant]
     Indication: DIABETES MELLITUS
     Dosage: 52 IU, QD (QHS)
     Route: 058

REACTIONS (1)
  - TONGUE DISCOLOURATION [None]
